FAERS Safety Report 7377324-1 (Version None)
Quarter: 2011Q1

REPORT INFORMATION
  Report Type: 
  Country: None (occurrence: None)
  Receive Date: 20110316
  Receipt Date: 20110310
  Transmission Date: 20110831
  Serious: Yes (Life-Threatening)
  Sender: FDA-Public Use
  Company Number: 2010SP057835

PATIENT
  Age: 68 Year
  Sex: Female

DRUGS (16)
  1. LORAZEPAM [Suspect]
     Indication: DEPRESSION
     Dosage: 0.5 MG; QD; PO
     Route: 048
  2. LORAZEPAM [Suspect]
     Indication: ANXIETY
     Dosage: 0.5 MG; QD; PO
     Route: 048
  3. DIOVAN [Suspect]
     Indication: HYPERTENSION
     Dosage: 40 MG; QD; PO
     Route: 048
     Dates: end: 20101015
  4. QUETIAPINE FUMARATE [Concomitant]
  5. OCTOTIAMINE [Concomitant]
  6. CLARITHROMYCIN [Concomitant]
  7. CARBOCISTEINE [Concomitant]
  8. REFLEX (MIRTAZAPINE /01293201/) [Suspect]
     Indication: DEPRESSION
     Dosage: (15 MG; QD; PO) (30 MG; QD; PO)
     Route: 048
     Dates: start: 20100614, end: 20101003
  9. REFLEX (MIRTAZAPINE /01293201/) [Suspect]
     Indication: DEPRESSION
     Dosage: (15 MG; QD; PO) (30 MG; QD; PO)
     Route: 048
     Dates: start: 20101004, end: 20101014
  10. CERCINE (DIAZEPAM) [Suspect]
     Indication: DEPRESSION
     Dosage: 4 MG; QD; PO
     Route: 048
     Dates: end: 20100614
  11. DOGMATYL [Concomitant]
  12. MEQUITAZINE [Concomitant]
  13. ETIZOLAM (ETIZOLAM) [Suspect]
     Indication: DEPRESSION
     Dosage: 1.5 MG; QD; PO
     Route: 048
  14. ZOLPIDEM TARTRATE [Suspect]
     Indication: DEPRESSION
     Dosage: 5 MG; QD; PO
     Route: 048
  15. POVIDONE IODINE [Concomitant]
  16. SULPIRIDE [Concomitant]

REACTIONS (18)
  - HEADACHE [None]
  - CONSTIPATION [None]
  - DRUG INTERACTION [None]
  - ASPARTATE AMINOTRANSFERASE INCREASED [None]
  - ALANINE AMINOTRANSFERASE INCREASED [None]
  - BLOOD TRIGLYCERIDES INCREASED [None]
  - DEPRESSION [None]
  - BLOOD CHOLESTEROL INCREASED [None]
  - DECREASED APPETITE [None]
  - SUICIDE ATTEMPT [None]
  - WEIGHT DECREASED [None]
  - DYSURIA [None]
  - PHARYNGITIS [None]
  - SEDATION [None]
  - CONDITION AGGRAVATED [None]
  - DYSPNOEA [None]
  - HYPERTENSION [None]
  - DRUG INEFFECTIVE [None]
